FAERS Safety Report 14144229 (Version 1)
Quarter: 2017Q4

REPORT INFORMATION
  Report Type: Spontaneous
  Country: AR (occurrence: AR)
  Receive Date: 20171031
  Receipt Date: 20171031
  Transmission Date: 20180321
  Serious: Yes (Other)
  Sender: FDA-Public Use
  Company Number: AR-AMGEN-ARGSP2017163818

PATIENT
  Age: 61 Year
  Sex: Male

DRUGS (1)
  1. ENBREL [Suspect]
     Active Substance: ETANERCEPT
     Indication: ANKYLOSING SPONDYLITIS
     Dosage: UNK, 2X/WEEK
     Route: 065
     Dates: start: 20050418

REACTIONS (1)
  - Umbilical hernia [Recovering/Resolving]

NARRATIVE: CASE EVENT DATE: 20170930
